FAERS Safety Report 5056222-2 (Version None)
Quarter: 2006Q2

REPORT INFORMATION
  Report Type: 
  Country: None (occurrence: None)
  Receive Date: 20060616
  Receipt Date: 20060329
  Transmission Date: 20061013
  Serious: Yes (Hospitalization)
  Sender: FDA-Public Use
  Company Number: 200610204US

PATIENT
  Age: 67 Year
  Sex: Female

DRUGS (8)
  1. LANTUS [Suspect]
     Indication: DIABETES MELLITUS INSULIN-DEPENDENT
     Dosage: 30 U HS SC
     Route: 058
  2. NORVASC [Concomitant]
  3. PAXIL [Concomitant]
  4. SYNTHROID [Concomitant]
  5. PANTOPRAZOLE SODIUM [Concomitant]
  6. CRESTOR [Concomitant]
  7. ACETYLSALICYLIC ACID SRT [Concomitant]
  8. HUMALOG [Concomitant]

REACTIONS (3)
  - BLOOD GLUCOSE INCREASED [None]
  - HYPERGLYCAEMIA [None]
  - URINE KETONE BODY PRESENT [None]
